FAERS Safety Report 7181183-X (Version None)
Quarter: 2010Q4

REPORT INFORMATION
  Report Type: 
  Country: None (occurrence: None)
  Receive Date: 20101221
  Receipt Date: 20101213
  Transmission Date: 20110411
  Serious: Yes (Death, Hospitalization, Other)
  Sender: FDA-Public Use
  Company Number: FR-PFIZER INC-2010129791

PATIENT
  Age: 79 Year
  Sex: Female
  Weight: 103 kg

DRUGS (43)
  1. ARGATROBAN [Suspect]
     Indication: HEPARIN-INDUCED THROMBOCYTOPENIA
     Dosage: 576 UG/KG (0.4 UG/KG,1 IN 1 MIN)
     Route: 042
     Dates: start: 20100922
  2. FLUCONAZOLE [Concomitant]
     Indication: ANTIFUNGAL TREATMENT
     Dosage: 400 MG, 1X/DAY
     Route: 042
     Dates: start: 20100929, end: 20101007
  3. TARGOCID [Concomitant]
     Indication: STAPHYLOCOCCAL INFECTION
     Dosage: 200 MG, 2X/DAY
     Route: 042
     Dates: start: 20100923, end: 20101009
  4. PANTOPRAZOLE [Concomitant]
     Indication: PROPHYLAXIS AGAINST GASTROINTESTINAL ULCER
     Dosage: 40 MG, 1X/DAY
     Route: 042
     Dates: start: 20100925, end: 20101007
  5. PANTOPRAZOLE [Concomitant]
     Dosage: 40 MG, 1X/DAY
     Route: 042
     Dates: start: 20100916, end: 20100924
  6. ASPEGIC 1000 [Concomitant]
     Indication: ANTICOAGULANT THERAPY
     Dosage: 100 MG, 1X/DAY
     Route: 042
     Dates: start: 20100925, end: 20101007
  7. ASPEGIC 1000 [Concomitant]
     Indication: ACUTE CORONARY SYNDROME
     Dosage: 125 MG, 1X/DAY
     Route: 042
     Dates: start: 20100916, end: 20100921
  8. PIPERACILLIN AND TAZOBACTAM [Concomitant]
     Indication: PNEUMONIA
     Dosage: 4 G, 2X/DAY
     Route: 042
     Dates: start: 20100925, end: 20101007
  9. PIPERACILLIN AND TAZOBACTAM [Concomitant]
     Dosage: 4 G, 2X/DAY
     Route: 042
     Dates: start: 20100915, end: 20100924
  10. CHINOMILLE [Concomitant]
     Indication: MEDICAL DIET
     Dosage: 1000 ML, CONTINUOUS
     Route: 042
     Dates: start: 20101004, end: 20101009
  11. GLUCIDION [Concomitant]
     Indication: INFUSION
     Dosage: 250 ML, CONTINUOUS
     Route: 042
     Dates: start: 20100923, end: 20101009
  12. NORADRENALINE [Concomitant]
     Indication: HYPOTENSION
     Dosage: 0.03 UG/KG/MIN CONTINUOUS
     Route: 042
     Dates: start: 20101004, end: 20101009
  13. NORADRENALINE [Concomitant]
     Indication: BLOOD ANTIDIURETIC HORMONE
     Dosage: 8 MG IN 48 ML, CONTINUOUS
     Dates: start: 20100925, end: 20100928
  14. NORADRENALINE [Concomitant]
     Indication: SEPTIC SHOCK
     Dosage: 0.2 UG/KG/MIN (CONTINOUS)
     Dates: start: 20100915, end: 20100920
  15. FUROSEMIDE [Concomitant]
     Indication: RENAL FAILURE
     Dosage: 40 MG, 1 IN 1 HR
     Route: 042
     Dates: start: 20100928, end: 20101006
  16. FUROSEMIDE [Concomitant]
     Dosage: 20 MG/HR, (CONTINOUS)
     Dates: start: 20100924, end: 20100927
  17. SODIUM CHLORIDE [Concomitant]
     Indication: ENTERAL NUTRITION
     Dosage: 500 ML
     Dates: start: 20100929, end: 20101002
  18. PHOCYTAN [Concomitant]
     Indication: HYPOPHOSPHATAEMIA
     Dosage: 50 MG
     Route: 042
     Dates: start: 20100928, end: 20100929
  19. PHOCYTAN [Concomitant]
     Dosage: 50 MG
     Route: 042
     Dates: start: 20100920, end: 20100924
  20. AMIODARONE [Concomitant]
     Indication: ARRHYTHMIA
     Dosage: 600 MG (IN 50 ML), CONTINUOUS
     Route: 042
     Dates: start: 20100928, end: 20101005
  21. LIPIDS NOS [Concomitant]
     Indication: PARENTERAL NUTRITION
     Dosage: 1000 ML, 1X/DAY
     Route: 042
     Dates: start: 20100927, end: 20101002
  22. LIPIDS NOS [Concomitant]
     Dosage: 1 LIT CONTINOUS
     Route: 042
     Dates: start: 20100916, end: 20100924
  23. RED BLOOD CELLS [Concomitant]
     Indication: ANAEMIA
     Dosage: 3 IU, 1X/DAY
     Route: 042
     Dates: start: 20100926, end: 20100926
  24. RED BLOOD CELLS [Concomitant]
     Dosage: 2 IU, 1X/DAY
     Route: 042
     Dates: start: 20100925, end: 20100925
  25. PROPOFOL [Concomitant]
     Indication: SEDATION
     Dosage: 500 MG (IN 50 ML), CONTINUOUS
     Route: 042
     Dates: start: 20100925, end: 20100927
  26. INSULIN [Concomitant]
     Indication: DIABETES MELLITUS
     Dosage: 50 IU IN 50 ML, CONTINUOUS
     Route: 042
     Dates: start: 20100925, end: 20101007
  27. INSULIN [Concomitant]
     Dosage: 1.6 IU/HR, CONTINUOUS
     Route: 042
     Dates: start: 20100923, end: 20100924
  28. INSULIN [Concomitant]
     Dosage: 0.6 IU/HR, CONTINUOUS
     Route: 042
     Dates: start: 20100920, end: 20100922
  29. INSULIN [Concomitant]
     Dosage: 6 IU, 1X/DAY
     Route: 058
     Dates: start: 20100919, end: 20100920
  30. EPOPROSTENOL [Concomitant]
     Indication: VASODILATION PROCEDURE
     Dosage: 500 MG IN 50 ML, CONTINUOUS
     Route: 042
     Dates: start: 20100925, end: 20101002
  31. EPOETIN BETA [Concomitant]
     Indication: ANAEMIA
     Dosage: 30 IU, 1X/DAY
     Route: 042
     Dates: start: 20100925, end: 20100925
  32. ACETAMINOPHEN [Concomitant]
     Indication: ANALGESIC THERAPY
     Dosage: 1000 MG, 4X/DAY
     Route: 042
     Dates: start: 20100925, end: 20101002
  33. TEICOPLANIN [Concomitant]
     Indication: PNEUMONIA
     Dosage: 400 MG, PER 72 HOURS
     Route: 042
     Dates: start: 20100925, end: 20100928
  34. ALBUMIN NORMAL HUMAN SERUM [Concomitant]
     Indication: HYPOVOLAEMIA
     Dosage: 20 G, 1X/DAY
     Route: 042
     Dates: start: 20100925, end: 20100926
  35. PANTOPRAZOLE [Concomitant]
     Indication: PROPHYLAXIS AGAINST GASTROINTESTINAL ULCER
     Dosage: 40 MG, 1X/DAY
     Route: 042
     Dates: start: 20100925, end: 20101007
  36. NEFOPAM [Concomitant]
     Indication: ANALGESIC THERAPY
     Dosage: 100 MG CONTINOUS
     Route: 042
     Dates: start: 20100924, end: 20100927
  37. GELOFUSINE [Concomitant]
     Indication: HYPOVOLAEMIA
     Dosage: 500 ML
     Route: 042
     Dates: start: 20100917, end: 20100918
  38. VALIUM [Concomitant]
     Indication: PSYCHOTIC DISORDER
     Dosage: 0.5 MG/HR, CONTINUOS
     Route: 042
     Dates: start: 20100922, end: 20100923
  39. VALIUM [Concomitant]
     Dosage: 1 MG/HR, CONTINOUS
     Route: 042
     Dates: start: 20100916, end: 20100922
  40. CORDARONE [Concomitant]
     Indication: ATRIAL FIBRILLATION
     Dosage: 600 MG/G, CONTINUOUS
     Route: 042
     Dates: start: 20100916, end: 20100920
  41. TIAPRIDAL [Concomitant]
     Indication: AGITATION
     Dosage: 100 MG, ON DEMAND
     Route: 042
     Dates: start: 20100916, end: 20100924
  42. ACUPAN [Concomitant]
     Indication: PAIN
     Dosage: 3.3 MG/HR, CONTINOUS
     Route: 042
     Dates: start: 20100916, end: 20100923
  43. FOLINIC ACID [Concomitant]
     Indication: HYPOVITAMINOSIS
     Dosage: 50 MG CONTINUOUS
     Route: 042
     Dates: start: 20100925, end: 20101007

REACTIONS (3)
  - GENERAL PHYSICAL HEALTH DETERIORATION [None]
  - LUNG DISORDER [None]
  - SEPSIS [None]
